FAERS Safety Report 8986983 (Version 2)
Quarter: 2013Q4

REPORT INFORMATION
  Report Type: Spontaneous
  Country: FR (occurrence: FR)
  Receive Date: 20121226
  Receipt Date: 20131001
  Transmission Date: 20140711
  Serious: Yes (Death, Life-Threatening, Hospitalization)
  Sender: FDA-Public Use
  Company Number: FR-BAXTER-2012BAX024357

PATIENT
  Age: 40 Year
  Sex: Female

DRUGS (4)
  1. ENDOXAN 2000 MG, LYOPHILISAT POUR SOLUTION INJECTABLE [Suspect]
     Indication: BONE MARROW CONDITIONING REGIMEN
     Route: 042
     Dates: start: 201002
  2. DAUNORUBICINE [Suspect]
     Indication: ACUTE MYELOID LEUKAEMIA
     Route: 065
     Dates: start: 200809, end: 200809
  3. ARACYTINE [Suspect]
     Indication: ACUTE MYELOID LEUKAEMIA
     Route: 065
     Dates: start: 200809, end: 200809
  4. MITOXANTRONE [Suspect]
     Indication: ACUTE MYELOID LEUKAEMIA
     Route: 065
     Dates: start: 200901, end: 200901

REACTIONS (4)
  - Escherichia sepsis [Fatal]
  - Aspergillus infection [Fatal]
  - Cardiomyopathy [Recovering/Resolving]
  - Acute respiratory distress syndrome [Fatal]
